FAERS Safety Report 4584093-7 (Version None)
Quarter: 2005Q1

REPORT INFORMATION
  Report Type: 
  Country: None (occurrence: None)
  Receive Date: 20050125
  Receipt Date: 20041101
  Transmission Date: 20050727
  Serious: No
  Sender: FDA-Public Use
  Company Number: USA041182784

PATIENT
  Age: 79 Year
  Sex: Female
  Weight: 41 kg

DRUGS (2)
  1. FORTEO [Suspect]
     Indication: OSTEOPOROSIS
     Dates: start: 20030722
  2. DIGOXIN [Concomitant]

REACTIONS (1)
  - WEIGHT DECREASED [None]
